FAERS Safety Report 6237732-9 (Version None)
Quarter: 2009Q2

REPORT INFORMATION
  Report Type: 
  Country: None (occurrence: None)
  Receive Date: 20090618
  Receipt Date: 20090612
  Transmission Date: 20091009
  Serious: Yes (Other)
  Sender: FDA-Public Use
  Company Number: 2009SP010717

PATIENT
  Age: 58 Year
  Sex: Female

DRUGS (6)
  1. CLARITIN-D 24 HOUR [Suspect]
     Indication: NASAL CONGESTION
     Dosage: 10 MG; QD; PO
     Route: 048
     Dates: start: 20090413, end: 20090422
  2. CLARITIN-D 24 HOUR [Suspect]
     Indication: SINUSITIS
     Dosage: 10 MG; QD; PO
     Route: 048
     Dates: start: 20090413, end: 20090422
  3. WELLBUTRIN [Suspect]
     Indication: DEPRESSION
  4. ANTIBIOTIC [Concomitant]
  5. AVELOX [Concomitant]
  6. TRAZODONE HCL [Concomitant]

REACTIONS (7)
  - ANGIOEDEMA [None]
  - BLISTER [None]
  - DYSPHAGIA [None]
  - EATING DISORDER [None]
  - HYPERSENSITIVITY [None]
  - ORAL HERPES [None]
  - PAIN [None]
